FAERS Safety Report 12154496 (Version 1)
Quarter: 2016Q1

REPORT INFORMATION
  Report Type: Spontaneous
  Country: US (occurrence: US)
  Receive Date: 20160307
  Receipt Date: 20160307
  Transmission Date: 20160526
  Serious: No
  Sender: FDA-Public Use
  Company Number: US-LUNDBECK-DKLU2010284

PATIENT
  Age: 75 Year
  Sex: Male

DRUGS (3)
  1. NORTHERA [Suspect]
     Active Substance: DROXIDOPA
     Indication: MOVEMENT DISORDER
  2. NORTHERA [Suspect]
     Active Substance: DROXIDOPA
     Indication: BASAL GANGLION DEGENERATION
  3. NORTHERA [Suspect]
     Active Substance: DROXIDOPA
     Indication: EXTRAPYRAMIDAL DISORDER
     Route: 048
     Dates: start: 201502

REACTIONS (1)
  - Catheter site infection [Unknown]

NARRATIVE: CASE EVENT DATE: 201602
